FAERS Safety Report 17620429 (Version 1)
Quarter: 2020Q2

REPORT INFORMATION
  Report Type: Spontaneous
  Country: GB (occurrence: GB)
  Receive Date: 20200403
  Receipt Date: 20200403
  Transmission Date: 20200713
  Serious: Yes (Other)
  Sender: FDA-Public Use
  Company Number: GB-NEBO-PC005375

PATIENT
  Age: 46 Year
  Sex: Female

DRUGS (1)
  1. MONOFER [Suspect]
     Active Substance: IRON ISOMALTOSIDE 1000
     Indication: IRON DEFICIENCY ANAEMIA
     Route: 042
     Dates: start: 20200203, end: 20200203

REACTIONS (3)
  - Polymenorrhoea [Unknown]
  - Menorrhagia [Recovering/Resolving]
  - Uterine haemorrhage [Unknown]

NARRATIVE: CASE EVENT DATE: 20200204
